FAERS Safety Report 12563121 (Version 1)
Quarter: 2016Q3

REPORT INFORMATION
  Report Type: Spontaneous
  Country: US (occurrence: US)
  Receive Date: 20160715
  Receipt Date: 20160715
  Transmission Date: 20161109
  Serious: No
  Sender: FDA-Public Use
  Company Number: US-009507513-1607USA006713

PATIENT
  Age: 47 Year
  Sex: Male

DRUGS (3)
  1. TEMODAR [Suspect]
     Active Substance: TEMOZOLOMIDE
     Indication: GLIOBLASTOMA MULTIFORME
     Dosage: 75 MG/M2/ DAY IN EACH CYCLE FOR 21 DAYS
  2. BEVACIZUMAB [Suspect]
     Active Substance: BEVACIZUMAB
     Dosage: 10 MG/KG ONCE EVERY 14 DAYS FOR 6 MONTHS
  3. TEMODAR [Suspect]
     Active Substance: TEMOZOLOMIDE
     Dosage: 150 MG/M2/DAY FOR 5 DAYS IN EACH CYCLE OF 28 DAYS

REACTIONS (1)
  - Drug ineffective [Unknown]
